FAERS Safety Report 4695582-9 (Version None)
Quarter: 2005Q2

REPORT INFORMATION
  Report Type: 
  Country: None (occurrence: None)
  Receive Date: 20050524
  Receipt Date: 20050413
  Transmission Date: 20051028
  Serious: Yes (Death)
  Sender: FDA-Public Use
  Company Number: 2005AP02234

PATIENT
  Age: 62 Year
  Sex: Male

DRUGS (1)
  1. LUPLINE [Suspect]
     Indication: PROSTATE CANCER

REACTIONS (1)
  - RENAL CELL CARCINOMA STAGE UNSPECIFIED [None]
